FAERS Safety Report 5317778-5 (Version None)
Quarter: 2007Q2

REPORT INFORMATION
  Report Type: 
  Country: None (occurrence: None)
  Receive Date: 20070502
  Receipt Date: 20070502
  Transmission Date: 20071010
  Serious: Yes (Life-Threatening, Hospitalization)
  Sender: FDA-Public Use
  Company Number: None

PATIENT
  Age: 20 Year
  Sex: Female
  Weight: 61.2356 kg

DRUGS (3)
  1. CYMBALTA [Suspect]
     Indication: ANXIETY
     Dosage: 30 MG ONCE DAILY QAM PO
     Route: 048
     Dates: start: 20050727, end: 20050728
  2. CYMBALTA [Suspect]
     Indication: DEPRESSION
     Dosage: 30 MG ONCE DAILY QAM PO
     Route: 048
     Dates: start: 20050727, end: 20050728
  3. CYMBALTA [Suspect]
     Indication: PANIC DISORDER
     Dosage: 30 MG ONCE DAILY QAM PO
     Route: 048
     Dates: start: 20050727, end: 20050728

REACTIONS (30)
  - ABNORMAL BEHAVIOUR [None]
  - ANXIETY [None]
  - CHILLS [None]
  - CONDITION AGGRAVATED [None]
  - CONVERSION DISORDER [None]
  - CONVULSION [None]
  - CRYING [None]
  - DEHYDRATION [None]
  - DELUSION [None]
  - DISORIENTATION [None]
  - EMOTIONAL DISORDER [None]
  - EMOTIONAL DISTRESS [None]
  - EPISTAXIS [None]
  - EUPHORIC MOOD [None]
  - FEELING HOT [None]
  - HYPERVENTILATION [None]
  - IMPAIRED DRIVING ABILITY [None]
  - INAPPROPRIATE AFFECT [None]
  - INSOMNIA [None]
  - MENTAL DISORDER [None]
  - MUSCLE SPASMS [None]
  - MYDRIASIS [None]
  - NERVOUS SYSTEM DISORDER [None]
  - NEURALGIA [None]
  - NO THERAPEUTIC RESPONSE [None]
  - PANIC ATTACK [None]
  - SCREAMING [None]
  - SUICIDAL IDEATION [None]
  - THINKING ABNORMAL [None]
  - VOMITING [None]
